FAERS Safety Report 5007724-6 (Version None)
Quarter: 2006Q2

REPORT INFORMATION
  Report Type: 
  Country: None (occurrence: None)
  Receive Date: 20060518
  Receipt Date: 20060504
  Transmission Date: 20061013
  Serious: Yes (Hospitalization)
  Sender: FDA-Public Use
  Company Number: 2006RR-02204

PATIENT
  Age: 67 Year

DRUGS (3)
  1. IBUPROFEN [Suspect]
  2. HEPARIN [Suspect]
     Indication: DEEP VEIN THROMBOSIS
  3. MORPHINE SULFATE [Suspect]

REACTIONS (2)
  - BARRETT'S OESOPHAGUS [None]
  - UPPER GASTROINTESTINAL HAEMORRHAGE [None]
